FAERS Safety Report 8378098-8 (Version None)
Quarter: 2012Q2

REPORT INFORMATION
  Report Type: 
  Country: None (occurrence: None)
  Receive Date: 20120522
  Receipt Date: 20120510
  Transmission Date: 20120825
  Serious: Yes (Death)
  Sender: FDA-Public Use
  Company Number: CA-ACTELION-A-US2012-64382

PATIENT

DRUGS (11)
  1. METFORMIN HCL [Concomitant]
  2. ADALAT [Concomitant]
  3. OXYGEN [Concomitant]
  4. WARFARIN SODIUM [Concomitant]
  5. RANITIDINE [Concomitant]
  6. AMILORID/HCTZ HELVEPHARM [Concomitant]
  7. TRACLEER [Suspect]
     Indication: PULMONARY ARTERIAL HYPERTENSION
     Dosage: 125 MG, BID
     Route: 048
     Dates: start: 20111001, end: 20120319
  8. TRACLEER [Suspect]
     Dosage: 62.5 MG, BID
     Route: 048
     Dates: start: 20110922, end: 20111001
  9. SIMVASTATIN [Concomitant]
  10. COZAAR [Concomitant]
  11. LASIX [Concomitant]

REACTIONS (3)
  - PANCREATITIS [None]
  - HAEMATEMESIS [None]
  - GASTROINTESTINAL HAEMORRHAGE [None]
